FAERS Safety Report 5853345-2 (Version None)
Quarter: 2008Q3

REPORT INFORMATION
  Report Type: 
  Country: None (occurrence: None)
  Receive Date: 20080820
  Receipt Date: 20080728
  Transmission Date: 20090109
  Serious: Yes (Other)
  Sender: FDA-Public Use
  Company Number: 8036022

PATIENT
  Sex: Male
  Weight: 68 kg

DRUGS (1)
  1. KEPPRA [Suspect]
     Indication: PARTIAL SEIZURES
     Dosage: 1500 MG/D PO
     Route: 048
     Dates: start: 20060101, end: 20080501

REACTIONS (1)
  - ELECTROCARDIOGRAM QT PROLONGED [None]
